FAERS Safety Report 13937761 (Version 1)
Quarter: 2017Q3

REPORT INFORMATION
  Report Type: Spontaneous
  Country: JP (occurrence: JP)
  Receive Date: 20170905
  Receipt Date: 20170905
  Transmission Date: 20171127
  Serious: Yes (Hospitalization, Other)
  Sender: FDA-Public Use
  Company Number: JP-PFIZER INC-2017376714

PATIENT
  Age: 87 Year
  Sex: Female
  Weight: 49 kg

DRUGS (9)
  1. FRANDOL [Concomitant]
     Active Substance: ISOSORBIDE DINITRATE
     Dosage: 40 MG, UNKNOWN FREQUENCY
  2. DEPAS [Concomitant]
     Active Substance: ETIZOLAM
     Dosage: 0.5 MG TWICE DAILY
  3. SELARA 25MG [Suspect]
     Active Substance: EPLERENONE
     Indication: HYPERTENSION
     Dosage: 25 MG ONCE DAILY
     Route: 048
     Dates: end: 20170812
  4. OLMETEC [Suspect]
     Active Substance: OLMESARTAN MEDOXOMIL
     Indication: HYPERTENSION
     Dosage: 20 MG TWICE DAILY
     Route: 048
     Dates: end: 20170812
  5. MYSER /00115501/ [Concomitant]
     Active Substance: CYCLOSERINE
     Dosage: UNK
  6. ATELEC [Concomitant]
     Active Substance: CILNIDIPINE
     Dosage: UNK
     Dates: start: 20170522
  7. MILTAX [Concomitant]
     Active Substance: VIDARABINE
     Dosage: UNK
  8. BUFFERIN A /00009201/ [Concomitant]
     Active Substance: ASPIRIN\DIHYDROXYALUMINUM AMINOACETATE ANHYDROUS\MAGNESIUM CARBONATE
     Dosage: UNK
  9. MYSLEE [Concomitant]
     Active Substance: ZOLPIDEM TARTRATE
     Dosage: 10 MG DAILY

REACTIONS (2)
  - Hyperkalaemia [Recovered/Resolved]
  - Hyponatraemia [Recovered/Resolved]

NARRATIVE: CASE EVENT DATE: 20170813
